FAERS Safety Report 8849689 (Version 2)
Quarter: 2013Q1

REPORT INFORMATION
  Report Type: Spontaneous
  Country: BR (occurrence: BR)
  Receive Date: 20121019
  Receipt Date: 20130328
  Transmission Date: 20140127
  Serious: Yes (Hospitalization, Other)
  Sender: FDA-Public Use
  Company Number: PHHY2012BR093150

PATIENT
  Sex: Male
  Weight: 62 kg

DRUGS (7)
  1. BUSONID [Concomitant]
     Indication: SINUSITIS
     Dosage: UNK UKN, BID (TWICE A DAY)
     Route: 045
  2. LOSARTAN [Concomitant]
     Indication: HYPERTENSION
     Dosage: 1 DF, DAILY
     Route: 048
     Dates: start: 201207
  3. OMEPRAZOLE [Concomitant]
     Indication: ABDOMINAL PAIN UPPER
     Dosage: 2 DF, DAILY
     Route: 048
     Dates: start: 201207
  4. FORASEQ [Suspect]
     Indication: ASTHMA
     Dosage: 4 DF, DAILY
  5. BAMIFIX [Concomitant]
     Indication: ASTHMA
     Dosage: 1 DF, DAILY
     Route: 048
     Dates: start: 201207
  6. PREDNISONE [Concomitant]
     Indication: ASTHMA
     Dosage: 2 DF, DAILY
     Route: 048
  7. BEROTEC [Concomitant]
     Indication: ASTHMA
     Dosage: UNK UKN, PRN (WHEN HE NEED)
     Dates: start: 201207

REACTIONS (4)
  - Lung infection [Recovered/Resolved]
  - Asthma [Recovering/Resolving]
  - Sputum increased [Recovering/Resolving]
  - Hypertension [Unknown]
